FAERS Safety Report 5519021-0 (Version None)
Quarter: 2007Q4

REPORT INFORMATION
  Report Type: 
  Country: None (occurrence: None)
  Receive Date: 20071114
  Receipt Date: 20071114
  Transmission Date: 20080405
  Serious: No
  Sender: FDA-Public Use
  Company Number: None

PATIENT

DRUGS (1)
  1. MORPHINE SULFATE [Suspect]
     Dosage: SOLUTION

REACTIONS (6)
  - DIZZINESS [None]
  - DRUG DISPENSING ERROR [None]
  - LOSS OF CONSCIOUSNESS [None]
  - MEDICATION ERROR [None]
  - NAUSEA [None]
  - WRONG DRUG ADMINISTERED [None]
